FAERS Safety Report 4294176-7 (Version None)
Quarter: 2004Q1

REPORT INFORMATION
  Report Type: 
  Country: None (occurrence: None)
  Receive Date: 20040213
  Receipt Date: 20031007
  Transmission Date: 20041129
  Serious: Yes (Other)
  Sender: FDA-Public Use
  Company Number: US-BRISTOL-MYERS SQUIBB COMPANY-12404174

PATIENT
  Age: 88 Year
  Sex: Female
  Weight: 65 kg

DRUGS (7)
  1. TEQUIN [Suspect]
     Indication: CELLULITIS
     Route: 042
     Dates: start: 20031006, end: 20031006
  2. PLAVIX [Concomitant]
  3. NORVASC [Concomitant]
  4. EVISTA [Concomitant]
  5. SEPTRA [Concomitant]
  6. GLUCOVANCE [Concomitant]
  7. MULTIVITAMIN [Concomitant]

REACTIONS (7)
  - ABDOMINAL DISCOMFORT [None]
  - CHEST DISCOMFORT [None]
  - CONVULSION [None]
  - MOANING [None]
  - MYOCARDIAL INFARCTION [None]
  - PALLOR [None]
  - VOMITING [None]
